FAERS Safety Report 16426704 (Version 1)
Quarter: 2019Q2

REPORT INFORMATION
  Report Type: Spontaneous
  Country: ZA (occurrence: ZA)
  Receive Date: 20190613
  Receipt Date: 20190613
  Transmission Date: 20190711
  Serious: Yes (Death, Other)
  Sender: FDA-Public Use
  Company Number: ZA-GLAXOSMITHKLINE-ZA2019GSK104387

PATIENT
  Sex: Male

DRUGS (3)
  1. FOXAIR [Suspect]
     Active Substance: FLUTICASONE PROPIONATE\SALMETEROL XINAFOATE
     Indication: CHRONIC OBSTRUCTIVE PULMONARY DISEASE
     Dosage: 50 ?G, UNK
  2. PURESIS [Concomitant]
     Active Substance: FUROSEMIDE
     Indication: DIURETIC THERAPY
     Dosage: 40 MG, UNK
     Route: 048
  3. TREPILINE [Concomitant]
     Active Substance: AMITRIPTYLINE
     Indication: STRESS
     Dosage: 25 MG, UNK
     Route: 048

REACTIONS (1)
  - Death [Fatal]
